FAERS Safety Report 6802942-6 (Version None)
Quarter: 2010Q2

REPORT INFORMATION
  Report Type: 
  Country: None (occurrence: None)
  Receive Date: 20100628
  Receipt Date: 20100618
  Transmission Date: 20101027
  Serious: Yes (Other)
  Sender: FDA-Public Use
  Company Number: JP-SANOFI-AVENTIS-2010SA023842

PATIENT
  Age: 46 Year
  Sex: Female

DRUGS (5)
  1. LASIX [Suspect]
     Indication: DRUG USE FOR UNKNOWN INDICATION
     Dates: start: 20090901, end: 20100423
  2. ATELEC [Concomitant]
  3. LONGES [Concomitant]
  4. BASEN [Concomitant]
  5. EPADEL [Concomitant]

REACTIONS (4)
  - CATARACT [None]
  - INTRAOCULAR PRESSURE INCREASED [None]
  - PIGMENTATION DISORDER [None]
  - RETINAL HAEMORRHAGE [None]
